FAERS Safety Report 12652819 (Version 4)
Quarter: 2016Q4

REPORT INFORMATION
  Report Type: Report from Study
  Country: JP (occurrence: JP)
  Receive Date: 20160815
  Receipt Date: 20161222
  Transmission Date: 20170207
  Serious: Yes (Hospitalization, Other)
  Sender: FDA-Public Use
  Company Number: PHJP2016JP023207

PATIENT
  Age: 20 Year
  Sex: Female

DRUGS (11)
  1. ACZ885 [Suspect]
     Active Substance: CANAKINUMAB
     Dosage: 450 MG PER 6 WEEKS
     Route: 058
  2. ACZ885 [Suspect]
     Active Substance: CANAKINUMAB
     Dosage: 450 MG, UNK
     Route: 058
     Dates: start: 20160704
  3. ACZ885 [Suspect]
     Active Substance: CANAKINUMAB
     Dosage: UNK
     Route: 058
     Dates: start: 20160905
  4. ACZ885 [Suspect]
     Active Substance: CANAKINUMAB
     Dosage: UNK
     Route: 058
     Dates: start: 20161017
  5. ACZ885 [Suspect]
     Active Substance: CANAKINUMAB
     Dosage: UNK, ONCE 6 WEEKS
     Route: 058
  6. ACZ885 [Suspect]
     Active Substance: CANAKINUMAB
     Indication: CRYOPYRIN ASSOCIATED PERIODIC SYNDROME
     Dosage: 150 MG, UNK
     Route: 058
     Dates: start: 20120306
  7. ACZ885 [Suspect]
     Active Substance: CANAKINUMAB
     Dosage: 300 MG, UNK
     Route: 058
     Dates: start: 20130725
  8. TEPRENONE [Concomitant]
     Active Substance: TEPRENONE
     Indication: PRODUCT USED FOR UNKNOWN INDICATION
     Dosage: 50 MG, BID
     Route: 065
  9. VOLTAREN [Concomitant]
     Active Substance: DICLOFENAC SODIUM
     Indication: PRODUCT USED FOR UNKNOWN INDICATION
     Dosage: 37.5 MG, BID
     Route: 065
  10. PREDNISOLON [Concomitant]
     Active Substance: PREDNISOLONE
     Indication: PRODUCT USED FOR UNKNOWN INDICATION
     Dosage: 10 MG, QD
     Route: 065
  11. PREDNISOLON [Concomitant]
     Active Substance: PREDNISOLONE
     Dosage: 40 MG, UNK
     Route: 065
     Dates: start: 20160912

REACTIONS (9)
  - Cytomegalovirus enterocolitis [Recovering/Resolving]
  - Pyrexia [Recovering/Resolving]
  - Arthralgia [Unknown]
  - Epstein-Barr virus infection [Unknown]
  - Gastrointestinal oedema [Unknown]
  - Joint swelling [Unknown]
  - Abdominal pain [Recovering/Resolving]
  - Diarrhoea [Recovering/Resolving]
  - Intestinal ulcer [Unknown]

NARRATIVE: CASE EVENT DATE: 20160715
